FAERS Safety Report 8157705-9 (Version None)
Quarter: 2012Q1

REPORT INFORMATION
  Report Type: 
  Country: None (occurrence: None)
  Receive Date: 20120222
  Receipt Date: 20120217
  Transmission Date: 20120608
  Serious: Yes (Other)
  Sender: FDA-Public Use
  Company Number: US-GILEAD-2011-0039340

PATIENT
  Age: 24 Year
  Sex: Female

DRUGS (3)
  1. MEDROXYPROGESTERONE [Concomitant]
     Dates: start: 20090815, end: 20101215
  2. EMTRICITABINE AND TENOFOVIR DISOPROXIL FUMARATE [Suspect]
     Indication: HIV INFECTION
     Dosage: UNK
     Dates: start: 20100505, end: 20110112
  3. IBUPROFEN TABLETS [Concomitant]
     Dates: start: 20110406

REACTIONS (2)
  - MATERNAL EXPOSURE DURING PREGNANCY [None]
  - ABORTION SPONTANEOUS [None]
